FAERS Safety Report 4324820-7 (Version None)
Quarter: 2004Q1

REPORT INFORMATION
  Report Type: 
  Country: None (occurrence: None)
  Receive Date: 20040323
  Receipt Date: 20040304
  Transmission Date: 20041129
  Serious: Yes (Hospitalization)
  Sender: FDA-Public Use
  Company Number: UK024541

PATIENT
  Age: 49 Year
  Sex: Female
  Weight: 73 kg

DRUGS (6)
  1. IL-1RA [Suspect]
     Indication: RHEUMATOID ARTHRITIS
     Dosage: 100 MG, DAILY, SC
     Route: 058
     Dates: start: 20020701
  2. OXYCODONE [Concomitant]
  3. TRAMADOL HCL [Concomitant]
  4. NIMESULIDE [Concomitant]
  5. AMITRIPTYLINE HCL [Concomitant]
  6. PREMPAX [Concomitant]

REACTIONS (6)
  - ANXIETY [None]
  - CAMPYLOBACTER INFECTION [None]
  - CHEST PAIN [None]
  - DIZZINESS [None]
  - IRON DEFICIENCY ANAEMIA [None]
  - PALPITATIONS [None]
